FAERS Safety Report 9682425 (Version 3)
Quarter: 2013Q4

REPORT INFORMATION
  Report Type: Spontaneous
  Country: DK (occurrence: DK)
  Receive Date: 20131112
  Receipt Date: 20131224
  Transmission Date: 20140711
  Serious: Yes (Other)
  Sender: FDA-Public Use
  Company Number: DK-ROCHE-1302237

PATIENT
  Age: 72 Year
  Sex: Female

DRUGS (5)
  1. LUCENTIS [Suspect]
     Indication: AGE-RELATED MACULAR DEGENERATION
     Dosage: 10MG/ML IN BOTH EYES
     Route: 050
     Dates: start: 20130418
  2. LUCENTIS [Suspect]
     Dosage: 10MG/ML IN BOTH EYES
     Route: 050
     Dates: start: 20130516
  3. LUCENTIS [Suspect]
     Dosage: 10MG/ML IN BOTH EYES
     Route: 050
     Dates: start: 20130613
  4. LUCENTIS [Suspect]
     Dosage: 10MG/ML IN BOTH EYES
     Route: 050
     Dates: start: 20130909
  5. LUCENTIS [Suspect]
     Dosage: 10MG/ML IN BOTH EYES
     Route: 050
     Dates: start: 20131101

REACTIONS (1)
  - Hypersensitivity [Recovered/Resolved]
